FAERS Safety Report 18917993 (Version 2)
Quarter: 2021Q3

REPORT INFORMATION
  Report Type: Spontaneous
  Country: JP (occurrence: JP)
  Receive Date: 20210220
  Receipt Date: 20210731
  Transmission Date: 20211014
  Serious: Yes (Hospitalization)
  Sender: FDA-Public Use
  Company Number: JP-ABBVIE-21K-087-3780498-00

PATIENT
  Age: 23 Year
  Sex: Male

DRUGS (9)
  1. ISENTRESS [Concomitant]
     Active Substance: RALTEGRAVIR POTASSIUM
     Indication: PRODUCT USED FOR UNKNOWN INDICATION
     Dates: start: 20130109, end: 20130205
  2. PREZISTANAIVE [Suspect]
     Active Substance: DARUNAVIR
     Route: 065
     Dates: start: 20121212, end: 20140515
  3. NORVIR [Suspect]
     Active Substance: RITONAVIR
     Indication: HIV INFECTION
     Route: 048
     Dates: start: 20120927, end: 20121211
  4. NORVIR [Suspect]
     Active Substance: RITONAVIR
     Route: 048
     Dates: start: 20130109, end: 20150615
  5. EMTRICITABINE/TENOFOVIR DISOPROXIL FUMARATE [Suspect]
     Active Substance: EMTRICITABINE\TENOFOVIR DISOPROXIL FUMARATE
     Indication: HIV INFECTION
     Route: 048
     Dates: start: 20120927, end: 20170208
  6. PREZISTANAIVE [Suspect]
     Active Substance: DARUNAVIR
     Indication: HIV INFECTION
     Route: 065
     Dates: start: 20120927, end: 20121211
  7. PREZISTANAIVE [Suspect]
     Active Substance: DARUNAVIR
     Route: 065
     Dates: start: 20140516, end: 20150615
  8. SYMBICORT [Concomitant]
     Active Substance: BUDESONIDE\FORMOTEROL FUMARATE DIHYDRATE
     Indication: PRODUCT USED FOR UNKNOWN INDICATION
     Dates: start: 20120927, end: 20130401
  9. TIVICAY [Concomitant]
     Active Substance: DOLUTEGRAVIR SODIUM
     Indication: PRODUCT USED FOR UNKNOWN INDICATION

REACTIONS (8)
  - Oral candidiasis [Recovered/Resolved]
  - Osteonecrosis [Recovering/Resolving]
  - Pain in extremity [Unknown]
  - Intervertebral disc protrusion [Recovering/Resolving]
  - Blood triglycerides increased [Not Recovered/Not Resolved]
  - Bronchitis [Recovering/Resolving]
  - Folliculitis [Not Recovered/Not Resolved]
  - Back pain [Unknown]

NARRATIVE: CASE EVENT DATE: 20121114
